FAERS Safety Report 9290377 (Version 2)
Quarter: 2014Q2

REPORT INFORMATION
  Report Type: Spontaneous
  Country: US (occurrence: US)
  Receive Date: 20130515
  Receipt Date: 20140428
  Transmission Date: 20141212
  Serious: No
  Sender: FDA-Public Use
  Company Number: US-PFIZER INC-2013148391

PATIENT
  Age: 69 Year
  Sex: Female

DRUGS (6)
  1. CELEBREX [Suspect]
     Dosage: UNK
  2. ADVIL [Suspect]
     Dosage: UNK
  3. ASPIRIN [Suspect]
     Dosage: UNK
  4. CODEINE [Suspect]
     Dosage: UNK
  5. PERCOCET [Suspect]
     Dosage: UNK
  6. CIPRO [Suspect]
     Dosage: UNK

REACTIONS (1)
  - Drug hypersensitivity [Unknown]
